FAERS Safety Report 6956785-3 (Version None)
Quarter: 2010Q3

REPORT INFORMATION
  Report Type: 
  Country: None (occurrence: None)
  Receive Date: 20100830
  Receipt Date: 20100813
  Transmission Date: 20110219
  Serious: Yes (Other)
  Sender: FDA-Public Use
  Company Number: PHHY2010US54940

PATIENT
  Sex: Female
  Weight: 106 kg

DRUGS (1)
  1. ZOMETA [Suspect]
     Indication: METASTASES TO BONE
     Dosage: 4MG, MONTHLY
     Dates: start: 20011206, end: 20040427

REACTIONS (2)
  - BIOPSY SKIN [None]
  - SKIN LESION [None]
